FAERS Safety Report 24312681 (Version 1)
Quarter: 2024Q3

REPORT INFORMATION
  Report Type: Spontaneous
  Country: US (occurrence: None)
  Receive Date: 20240912
  Receipt Date: 20240912
  Transmission Date: 20241016
  Serious: No
  Sender: ASTRAZENECA
  Company Number: 2024A200815

PATIENT
  Sex: Male

DRUGS (1)
  1. BRILINTA [Suspect]
     Active Substance: TICAGRELOR
     Indication: Stent placement
     Route: 048
     Dates: start: 2024

REACTIONS (5)
  - Pruritus [Unknown]
  - Insomnia [Unknown]
  - Scratch [Unknown]
  - Feeling abnormal [Unknown]
  - Visual impairment [Unknown]
